FAERS Safety Report 4518030-8 (Version None)
Quarter: 2004Q4

REPORT INFORMATION
  Report Type: 
  Country: None (occurrence: None)
  Receive Date: 20041130
  Receipt Date: 20040730
  Transmission Date: 20050328
  Serious: Yes (Life-Threatening)
  Sender: FDA-Public Use
  Company Number: WAES 0408USA00288

PATIENT
  Age: 81 Year
  Sex: Female

DRUGS (6)
  1. COZAAR [Suspect]
     Indication: HYPERTENSION
     Dosage: SEE IMAGE
     Route: 048
     Dates: start: 20001017, end: 20001208
  2. COZAAR [Suspect]
     Indication: HYPERTENSION
     Dosage: SEE IMAGE
     Route: 048
     Dates: start: 20001208
  3. CARDENALIN [Concomitant]
  4. EPADEL [Concomitant]
  5. PEPCID [Concomitant]
  6. TROXIPIDE [Concomitant]

REACTIONS (3)
  - DUODENAL ULCER PERFORATION [None]
  - PLATELET COUNT INCREASED [None]
  - RED BLOOD CELL COUNT INCREASED [None]
